FAERS Safety Report 18607370 (Version 6)
Quarter: 2023Q4

REPORT INFORMATION
  Report Type: Spontaneous
  Country: US (occurrence: US)
  Receive Date: 20201211
  Receipt Date: 20231115
  Transmission Date: 20240109
  Serious: No
  Sender: FDA-Public Use
  Company Number: US-PFIZER INC-2020487419

PATIENT
  Age: 64 Year
  Sex: Female

DRUGS (7)
  1. IBRANCE [Suspect]
     Active Substance: PALBOCICLIB
     Indication: Breast cancer female
     Dosage: 100 MG CYCLIC  (21 DAYS ON, 7 DAYS OFF)
     Route: 048
     Dates: start: 201610
  2. IBRANCE [Suspect]
     Active Substance: PALBOCICLIB
     Dosage: TAKE 1 TABLET ONCE DAILY WITH A MEAL. TAKE FOR 21 DAYS ON, FOLLOWED BY 14 DAYS OFF
     Route: 048
  3. IBRANCE [Suspect]
     Active Substance: PALBOCICLIB
     Dosage: TAKE 75 MG BY MOUTH ONCE DAILY WITH A MEAL. TAKE FOR 21 DAYS ON, 14 DAYS OFF.
     Route: 048
  4. GABAPENTIN [Concomitant]
     Active Substance: GABAPENTIN
     Indication: Cancer pain
     Dosage: TAKE 0.5-1 TABLET (300-600 MG) AT BEDTIME
     Route: 048
  5. GABAPENTIN [Concomitant]
     Active Substance: GABAPENTIN
     Indication: Neuropathy peripheral
  6. VENLAFAXINE [Concomitant]
     Active Substance: VENLAFAXINE HYDROCHLORIDE
     Indication: Breast cancer metastatic
     Dosage: 37.5 MG, (TAKE 1 TABLET 2 TIMES DAILY)
     Route: 048
  7. VENLAFAXINE [Concomitant]
     Active Substance: VENLAFAXINE HYDROCHLORIDE
     Indication: Cancer pain

REACTIONS (3)
  - COVID-19 [Unknown]
  - Full blood count decreased [Unknown]
  - Off label use [Unknown]
